FAERS Safety Report 4614853-5 (Version None)
Quarter: 2005Q1

REPORT INFORMATION
  Report Type: 
  Country: None (occurrence: None)
  Receive Date: 20050318
  Receipt Date: 20050318
  Transmission Date: 20050727
  Serious: Yes (Life-Threatening)
  Sender: FDA-Public Use
  Company Number: None

PATIENT
  Age: 32 Year
  Sex: Female
  Weight: 68.0396 kg

DRUGS (2)
  1. PAXIL [Suspect]
     Indication: DEPRESSION
     Dosage: 30 MG   DAILY   ORAL
     Route: 048
     Dates: start: 20030301, end: 20050312
  2. PAXIL [Suspect]
     Indication: PANIC ATTACK
     Dosage: 30 MG   DAILY   ORAL
     Route: 048
     Dates: start: 20030301, end: 20050312

REACTIONS (11)
  - DEPENDENCE [None]
  - DEPERSONALISATION [None]
  - DEPRESSION [None]
  - DRUG EXPOSURE DURING PREGNANCY [None]
  - DRUG WITHDRAWAL SYNDROME [None]
  - FEELING ABNORMAL [None]
  - IMPAIRED WORK ABILITY [None]
  - MENTAL IMPAIRMENT [None]
  - SUICIDAL IDEATION [None]
  - TINNITUS [None]
  - TREATMENT NONCOMPLIANCE [None]
